FAERS Safety Report 7057700-7 (Version None)
Quarter: 2010Q4

REPORT INFORMATION
  Report Type: 
  Country: None (occurrence: None)
  Receive Date: 20101022
  Receipt Date: 20101021
  Transmission Date: 20110411
  Serious: Yes (Hospitalization)
  Sender: FDA-Public Use
  Company Number: TH-SP-2010-04945

PATIENT
  Sex: Male

DRUGS (1)
  1. IMMUCYST [Suspect]
     Indication: BLADDER CANCER
     Route: 065
     Dates: start: 20100727, end: 20100902

REACTIONS (10)
  - ARTHRALGIA [None]
  - ARTHRITIS [None]
  - CONJUNCTIVITIS [None]
  - CYSTITIS [None]
  - DRUG INTOLERANCE [None]
  - DYSURIA [None]
  - HAEMATURIA [None]
  - PYREXIA [None]
  - SEPSIS [None]
  - URETHRITIS [None]
